FAERS Safety Report 16354570 (Version 1)
Quarter: 2019Q2

REPORT INFORMATION
  Report Type: Spontaneous
  Country: US (occurrence: US)
  Receive Date: 20190524
  Receipt Date: 20190524
  Transmission Date: 20190711
  Serious: Yes (Life-Threatening, Other)
  Sender: FDA-Public Use
  Company Number: US-B.I. PHARMACEUTICALS,INC./RIDGEFIELD-2019-BI-023195

PATIENT
  Age: 17 Year
  Sex: Female

DRUGS (1)
  1. CATAPRES [Suspect]
     Active Substance: CLONIDINE HYDROCHLORIDE
     Indication: PRODUCT USED FOR UNKNOWN INDICATION
     Dosage: INGESTION OF 160 TABLETS, 0.1MG
     Route: 048

REACTIONS (8)
  - Overdose [Unknown]
  - Somnolence [Unknown]
  - Hypertension [Unknown]
  - Pulmonary oedema [Unknown]
  - Bradycardia [Unknown]
  - Mental disorder [Unknown]
  - Ejection fraction decreased [Unknown]
  - Hypotension [Unknown]
